FAERS Safety Report 16169797 (Version 1)
Quarter: 2019Q2

REPORT INFORMATION
  Report Type: Report from Study
  Country: US (occurrence: US)
  Receive Date: 20190408
  Receipt Date: 20190408
  Transmission Date: 20190711
  Serious: Yes (Other)
  Sender: FDA-Public Use
  Company Number: US-GILEAD-2019-0400805

PATIENT

DRUGS (1)
  1. LEDIPASVIR/SOFOSBUVIR [Suspect]
     Active Substance: LEDIPASVIR\SOFOSBUVIR
     Indication: HEPATITIS C
     Dosage: UNK
     Route: 065

REACTIONS (4)
  - Chorioretinitis [Unknown]
  - Cystoid macular oedema [Recovering/Resolving]
  - Optic neuritis [Recovering/Resolving]
  - Vasculitis [Recovering/Resolving]
